FAERS Safety Report 5751459-9 (Version None)
Quarter: 2008Q2

REPORT INFORMATION
  Report Type: 
  Country: None (occurrence: None)
  Receive Date: 20080527
  Receipt Date: 20080515
  Transmission Date: 20081010
  Serious: Yes (Other)
  Sender: FDA-Public Use
  Company Number: 19347

PATIENT
  Age: 51 Year
  Sex: Male

DRUGS (1)
  1. MITOXANTRONE [Suspect]
     Indication: MULTIPLE SCLEROSIS

REACTIONS (4)
  - ACUTE PROMYELOCYTIC LEUKAEMIA [None]
  - CELLULITIS [None]
  - MARROW HYPERPLASIA [None]
  - PANCYTOPENIA [None]
